FAERS Safety Report 5755578-2 (Version None)
Quarter: 2008Q2

REPORT INFORMATION
  Report Type: 
  Country: None (occurrence: None)
  Receive Date: 20080602
  Receipt Date: 20080520
  Transmission Date: 20081010
  Serious: Yes (Other)
  Sender: FDA-Public Use
  Company Number: US-MERCK-0805USA04659

PATIENT
  Age: 5 Year
  Sex: Male
  Weight: 41 kg

DRUGS (3)
  1. SINGULAIR [Suspect]
     Indication: ASTHMA
     Route: 048
     Dates: start: 20050928, end: 20080327
  2. ALBUTEROL [Concomitant]
     Indication: ASTHMA
     Dates: start: 20011205
  3. QVAR 40 [Concomitant]
     Indication: ASTHMA
     Dates: start: 20040218

REACTIONS (2)
  - AGGRESSION [None]
  - SUICIDAL IDEATION [None]
